FAERS Safety Report 7988290-X (Version None)
Quarter: 2011Q4

REPORT INFORMATION
  Report Type: 
  Country: None (occurrence: None)
  Receive Date: 20111216
  Receipt Date: 20110811
  Transmission Date: 20120403
  Serious: Yes (Other)
  Sender: FDA-Public Use
  Company Number: US-WATSON-2011-21746

PATIENT
  Sex: Female

DRUGS (2)
  1. REGLAN [Suspect]
     Indication: PRODUCT USED FOR UNKNOWN INDICATION
     Dosage: UNK
     Route: 048
     Dates: start: 20050101, end: 20050201
  2. METOCLOPRAMIDE HYDROCHLORIDE [Suspect]
     Indication: PRODUCT USED FOR UNKNOWN INDICATION
     Dosage: UNK
     Route: 048
     Dates: start: 20050101, end: 20050201

REACTIONS (5)
  - CONDITION AGGRAVATED [None]
  - TARDIVE DYSKINESIA [None]
  - TREMOR [None]
  - RESTLESS LEGS SYNDROME [None]
  - EXTRAPYRAMIDAL DISORDER [None]
